FAERS Safety Report 7987726-8 (Version None)
Quarter: 2011Q4

REPORT INFORMATION
  Report Type: 
  Country: None (occurrence: None)
  Receive Date: 20111216
  Receipt Date: 20110503
  Transmission Date: 20120403
  Serious: No
  Sender: FDA-Public Use
  Company Number: US-BRISTOL-MYERS SQUIBB COMPANY-15713753

PATIENT
  Age: 7 Year
  Sex: Female
  Weight: 27 kg

DRUGS (1)
  1. ABILIFY [Suspect]
     Indication: ATTENTION DEFICIT/HYPERACTIVITY DISORDER
     Dosage: FOR ABOUT A WEEK

REACTIONS (1)
  - PAIN IN EXTREMITY [None]
